FAERS Safety Report 8573166-X (Version None)
Quarter: 2012Q2

REPORT INFORMATION
  Report Type: 
  Country: None (occurrence: None)
  Receive Date: 20120423
  Receipt Date: 20090928
  Transmission Date: 20120825
  Serious: Yes (Other)
  Sender: FDA-Public Use
  Company Number: PHEH2009US11013

PATIENT
  Age: 73 Year
  Sex: Male

DRUGS (6)
  1. ASPIRIN [Concomitant]
  2. PLAVIX [Concomitant]
  3. EXJADE [Suspect]
     Indication: IRON OVERLOAD
     Dosage: 1500 MG, QD, ORAL
     Route: 048
     Dates: start: 20090708, end: 20090805
  4. CARVEDILOL [Concomitant]
  5. PEPCID [Concomitant]
  6. LEVOTHYROXINE SODIUM [Concomitant]

REACTIONS (6)
  - ALANINE AMINOTRANSFERASE INCREASED [None]
  - ASPARTATE AMINOTRANSFERASE INCREASED [None]
  - BLOOD BILIRUBIN INCREASED [None]
  - JAUNDICE [None]
  - BLOOD ALKALINE PHOSPHATASE INCREASED [None]
  - BILIRUBIN CONJUGATED INCREASED [None]
